FAERS Safety Report 10072042 (Version 1)
Quarter: 2014Q2

REPORT INFORMATION
  Report Type: Spontaneous
  Country: US (occurrence: None)
  Receive Date: 20140410
  Receipt Date: 20140410
  Transmission Date: 20141212
  Serious: Yes (Disabling)
  Sender: FDA-Public Use
  Company Number: None

PATIENT
  Age: 62 Year
  Sex: Female
  Weight: 58.51 kg

DRUGS (11)
  1. ALENDRONATE SODIUM [Suspect]
     Indication: OSTEOPOROSIS
     Dosage: 1 TABLET, ONCE WEEKLY, BY MOUTH
     Route: 048
     Dates: start: 20140323, end: 20140324
  2. GILDESS [Concomitant]
  3. ZOLPIDEM [Concomitant]
  4. LISINOPRIL [Concomitant]
  5. SIMVASTATIN [Concomitant]
  6. CALCIUM [Concomitant]
  7. VITAMIN D [Concomitant]
  8. ZINC [Concomitant]
  9. MAGNESIUM [Concomitant]
  10. ADVIL [Concomitant]
  11. ASPIRIN [Concomitant]

REACTIONS (8)
  - Diarrhoea [None]
  - Abdominal pain [None]
  - Nausea [None]
  - Pain in extremity [None]
  - Peripheral swelling [None]
  - Mass [None]
  - Erythema [None]
  - Arthropathy [None]
